FAERS Safety Report 23772961 (Version 1)
Quarter: 2024Q2

REPORT INFORMATION
  Report Type: Spontaneous
  Country: US (occurrence: US)
  Receive Date: 20240423
  Receipt Date: 20240423
  Transmission Date: 20240717
  Serious: No
  Sender: FDA-Public Use
  Company Number: US-SA-SAC20240417000822

PATIENT
  Age: 50 Year
  Sex: Female
  Weight: 57 kg

DRUGS (1)
  1. DUPIXENT [Suspect]
     Active Substance: DUPILUMAB
     Indication: Dermatitis atopic
     Dosage: 300 MG, QOW
     Route: 058
     Dates: start: 202107

REACTIONS (2)
  - Skin odour abnormal [Unknown]
  - Dermatitis atopic [Not Recovered/Not Resolved]

NARRATIVE: CASE EVENT DATE: 20230101
